FAERS Safety Report 7098809-1 (Version None)
Quarter: 2010Q4

REPORT INFORMATION
  Report Type: 
  Country: None (occurrence: None)
  Receive Date: 20101104
  Receipt Date: 20101029
  Transmission Date: 20110411
  Serious: Yes (Hospitalization, Other)
  Sender: FDA-Public Use
  Company Number: 20109521

PATIENT
  Sex: Male

DRUGS (1)
  1. LIORESAL [Suspect]
     Indication: MUSCLE SPASTICITY
     Dosage: 120.07 MCG, DAILY, INTRATHECAL
     Route: 037

REACTIONS (2)
  - CULTURE WOUND POSITIVE [None]
  - INTRACRANIAL HYPOTENSION [None]
